FAERS Safety Report 20868329 (Version 1)
Quarter: 2022Q2

REPORT INFORMATION
  Report Type: Spontaneous
  Country: JP (occurrence: JP)
  Receive Date: 20220524
  Receipt Date: 20220524
  Transmission Date: 20220721
  Serious: Yes (Other)
  Sender: FDA-Public Use
  Company Number: JP-PFIZER INC-202200727702

PATIENT
  Age: 33 Year
  Sex: Female

DRUGS (4)
  1. LOMERIZINE HYDROCHLORIDE [Suspect]
     Active Substance: LOMERIZINE HYDROCHLORIDE
     Indication: Migraine
     Dosage: UNK, AS NEEDED
     Route: 048
     Dates: start: 20220412
  2. RELPAX [Suspect]
     Active Substance: ELETRIPTAN HYDROBROMIDE
     Indication: Migraine
     Dosage: UNK, AS NEEDED
     Route: 048
     Dates: start: 20220412
  3. PAXIL [Concomitant]
     Active Substance: PAROXETINE HYDROCHLORIDE
  4. SULPIRIDE [Concomitant]
     Active Substance: SULPIRIDE

REACTIONS (1)
  - Syncope [Unknown]

NARRATIVE: CASE EVENT DATE: 20220501
